FAERS Safety Report 6815069-4 (Version None)
Quarter: 2010Q2

REPORT INFORMATION
  Report Type: 
  Country: None (occurrence: None)
  Receive Date: 20100630
  Receipt Date: 20100630
  Transmission Date: 20101027
  Serious: No
  Sender: FDA-Public Use
  Company Number: None

PATIENT
  Sex: Male
  Weight: 94.8018 kg

DRUGS (1)
  1. PRAVACHOL [Suspect]
     Indication: DYSLIPIDAEMIA
     Dosage: UNKNOWN

REACTIONS (2)
  - MYALGIA [None]
  - PRODUCT SUBSTITUTION ISSUE [None]
